FAERS Safety Report 4376641-7 (Version None)
Quarter: 2004Q2

REPORT INFORMATION
  Report Type: 
  Country: None (occurrence: None)
  Receive Date: 20040608
  Receipt Date: 20040602
  Transmission Date: 20050107
  Serious: Yes (Hospitalization)
  Sender: FDA-Public Use
  Company Number: STA-AE-04-MTX-247

PATIENT
  Age: 51 Year
  Sex: Female

DRUGS (5)
  1. METHOTREXATE [Suspect]
     Indication: RHEUMATOID ARTHRITIS
     Dates: start: 20020205
  2. PREDNISONE [Concomitant]
  3. CELEBREX [Concomitant]
  4. HYDROXYCHLOROQUINE SULFATE [Concomitant]
  5. RITUXAN [Concomitant]

REACTIONS (4)
  - BRONCHITIS [None]
  - EPIGLOTTITIS [None]
  - HYPOPHOSPHATAEMIA [None]
  - STAPHYLOCOCCAL INFECTION [None]
